FAERS Safety Report 15369900 (Version 3)
Quarter: 2025Q1

REPORT INFORMATION
  Report Type: Spontaneous
  Country: DE (occurrence: DE)
  Receive Date: 20180911
  Receipt Date: 20250320
  Transmission Date: 20250409
  Serious: Yes (Hospitalization, Other)
  Sender: AUROBINDO
  Company Number: DE-AUROBINDO-AUR-APL-2018-045289

PATIENT
  Age: 74 Year
  Sex: Male

DRUGS (15)
  1. VENLAFAXINE [Suspect]
     Active Substance: VENLAFAXINE HYDROCHLORIDE
     Indication: Major depression
     Route: 065
  2. MIRTAZAPINE [Suspect]
     Active Substance: MIRTAZAPINE
     Indication: Major depression
     Route: 065
  3. SERTRALINE [Suspect]
     Active Substance: SERTRALINE HYDROCHLORIDE
     Indication: Major depression
     Route: 065
  4. LIOTHYRONINE SODIUM [Suspect]
     Active Substance: LIOTHYRONINE SODIUM
     Indication: Hypothyroidism
     Route: 065
  5. LIOTHYRONINE SODIUM [Suspect]
     Active Substance: LIOTHYRONINE SODIUM
     Dosage: 75 MILLIGRAM, ONCE A DAY
     Route: 048
  6. CLOMIPRAMINE [Suspect]
     Active Substance: CLOMIPRAMINE
     Indication: Major depression
     Dosage: 175 MILLIGRAM, ONCE A DAY
     Route: 048
  7. CLOMIPRAMINE [Suspect]
     Active Substance: CLOMIPRAMINE
     Route: 065
  8. CARBAMAZEPINE [Suspect]
     Active Substance: CARBAMAZEPINE
     Indication: Bipolar I disorder
     Dosage: 600 MILLIGRAM, ONCE A DAY
     Route: 065
  9. CARBAMAZEPINE [Suspect]
     Active Substance: CARBAMAZEPINE
     Indication: Depression
     Dosage: 600 MILLIGRAM, ONCE A DAY
     Route: 048
  10. LORAZEPAM [Concomitant]
     Active Substance: LORAZEPAM
     Indication: Product used for unknown indication
     Dosage: 0.5 MILLIGRAM, ONCE A DAY
     Route: 048
  11. LORAZEPAM [Concomitant]
     Active Substance: LORAZEPAM
     Indication: Depression
     Route: 048
  12. LIOTHYRONINE SODIUM [Concomitant]
     Active Substance: LIOTHYRONINE SODIUM
     Indication: Product used for unknown indication
     Route: 065
  13. OLANZAPINE [Concomitant]
     Active Substance: OLANZAPINE
     Indication: Product used for unknown indication
     Dosage: 10 MILLIGRAM, ONCE A DAY
     Route: 065
  14. PERAZINE [Concomitant]
     Active Substance: PERAZINE
     Indication: Product used for unknown indication
     Dosage: 150 MILLIGRAM, ONCE A DAY
     Route: 065
  15. LAMOTRIGINE [Concomitant]
     Active Substance: LAMOTRIGINE
     Indication: Product used for unknown indication
     Dosage: 100 MILLIGRAM, ONCE A DAY
     Route: 065

REACTIONS (20)
  - Speech disorder [Recovered/Resolved]
  - Delusion [Recovered/Resolved]
  - Feelings of worthlessness [Unknown]
  - Insomnia [Recovered/Resolved]
  - Major depression [Unknown]
  - Mania [Recovered/Resolved]
  - Depression [Recovered/Resolved]
  - Asthenia [Unknown]
  - Loose associations [Recovered/Resolved]
  - Mood altered [Recovered/Resolved]
  - Incoherent [Recovered/Resolved]
  - Anhedonia [Unknown]
  - Psychomotor retardation [Unknown]
  - Drug withdrawal syndrome [Recovered/Resolved]
  - Pressure of speech [Recovered/Resolved]
  - Liver function test abnormal [Unknown]
  - Psychomotor hyperactivity [Recovered/Resolved]
  - Bipolar disorder [Recovered/Resolved]
  - Rebound effect [Recovered/Resolved]
  - Drug ineffective [Recovered/Resolved]
